FAERS Safety Report 10403268 (Version 1)
Quarter: 2014Q3

REPORT INFORMATION
  Report Type: Spontaneous
  Country: US (occurrence: US)
  Receive Date: 20140822
  Receipt Date: 20140822
  Transmission Date: 20150326
  Serious: Yes (Other)
  Sender: FDA-Public Use
  Company Number: US-PFIZER INC-2014233065

PATIENT
  Age: 65 Year
  Sex: Male

DRUGS (1)
  1. CELEBREX [Suspect]
     Active Substance: CELECOXIB
     Indication: POST-TRAUMATIC NECK SYNDROME
     Dosage: UNK

REACTIONS (3)
  - Drug effect incomplete [Unknown]
  - Haemorrhage [Unknown]
  - Drug ineffective [Unknown]
